FAERS Safety Report 8095294-8 (Version None)
Quarter: 2012Q1

REPORT INFORMATION
  Report Type: 
  Country: None (occurrence: None)
  Receive Date: 20120129
  Receipt Date: 20111218
  Transmission Date: 20120608
  Serious: No
  Sender: FDA-Public Use
  Company Number: US-ABBOTT-11P-163-0884775-00

PATIENT
  Age: 75 Year
  Sex: Female

DRUGS (20)
  1. LIPITOR [Concomitant]
     Indication: BLOOD CHOLESTEROL INCREASED
  2. XALATAN [Concomitant]
     Indication: GLAUCOMA
  3. FOLIC ACID [Concomitant]
     Indication: POLYMEDICATION
  4. ASPIRIN [Concomitant]
     Indication: PROPHYLAXIS
  5. METHOTREXATE [Concomitant]
     Indication: RHEUMATOID ARTHRITIS
     Dosage: 4 TABLETS WEEKLY
  6. OMEPRAZOLE [Concomitant]
     Indication: DYSPEPSIA
  7. AVAPRO [Concomitant]
     Indication: BLOOD PRESSURE
  8. RESTASIS [Concomitant]
     Indication: DRY EYE
  9. REWETTING EYE DROPS [Concomitant]
     Indication: DRY EYE
     Dosage: DAILY
  10. GENERIC CELEXA [Concomitant]
     Indication: ANXIETY
  11. HUMIRA [Suspect]
     Indication: RHEUMATOID ARTHRITIS
     Dates: start: 20100101
  12. MULTI-VITAMINS [Concomitant]
     Indication: SUPPLEMENTATION THERAPY
  13. NASONEX [Concomitant]
     Indication: SINUS DISORDER
     Dosage: 1 SPRAY EACH NOSTILE BID
  14. FISH OIL [Concomitant]
     Indication: SUPPLEMENTATION THERAPY
  15. PRILOSEC [Concomitant]
     Indication: DYSPEPSIA
     Dosage: DAILY
  16. CITROCAL [Concomitant]
     Indication: SUPPLEMENTATION THERAPY
  17. BIOTIN [Concomitant]
     Indication: SUPPLEMENTATION THERAPY
  18. HYDROXYCHLOROQUINE SULFATE [Concomitant]
     Indication: RHEUMATOID ARTHRITIS
  19. ALPHAGAN [Concomitant]
     Indication: GLAUCOMA
     Dosage: 1 DROP EACH EYE BID
  20. LIDODERM [Concomitant]
     Indication: ILL-DEFINED DISORDER
     Route: 062

REACTIONS (5)
  - COUGH [None]
  - CHEST DISCOMFORT [None]
  - DYSPNOEA [None]
  - PYREXIA [None]
  - SINUS DISORDER [None]
